FAERS Safety Report 26128803 (Version 1)
Quarter: 2025Q4

REPORT INFORMATION
  Report Type: Spontaneous
  Country: GB (occurrence: GB)
  Receive Date: 20251208
  Receipt Date: 20251208
  Transmission Date: 20260117
  Serious: Yes (Hospitalization)
  Sender: MERCK SHARP & DOHME LLC
  Company Number: GB-009507513-2358220

PATIENT
  Age: 83 Year
  Sex: Female

DRUGS (1)
  1. ZEPATIER [Suspect]
     Active Substance: ELBASVIR\GRAZOPREVIR
     Indication: Hepatitis C
     Dosage: 1.00 ^EA^, ONCE DAILY (OD)
     Route: 048

REACTIONS (2)
  - Blood glucose abnormal [Not Recovered/Not Resolved]
  - Renal disorder [Not Recovered/Not Resolved]
